FAERS Safety Report 10525050 (Version 1)
Quarter: 2014Q4

REPORT INFORMATION
  Report Type: Spontaneous
  Country: US (occurrence: None)
  Receive Date: 20141015
  Receipt Date: 20141015
  Transmission Date: 20150528
  Serious: Yes (Life-Threatening, Hospitalization)
  Sender: FDA-Public Use
  Company Number: None

PATIENT
  Age: 30 Year
  Sex: Male
  Weight: 105 kg

DRUGS (8)
  1. REMERON [Suspect]
     Active Substance: MIRTAZAPINE
     Indication: DEPRESSION
     Dosage: 1 TABLET
     Route: 048
  2. BENZTROPINE [Concomitant]
     Active Substance: BENZTROPINE
  3. CLONIDINE. [Concomitant]
     Active Substance: CLONIDINE
  4. DEPAKOTE [Concomitant]
     Active Substance: DIVALPROEX SODIUM
  5. PRAZOSIN [Concomitant]
     Active Substance: PRAZOSIN
  6. HALDOL DECANOATE [Concomitant]
     Active Substance: HALOPERIDOL DECANOATE
  7. INVEGA SUSTENNA [Concomitant]
     Active Substance: PALIPERIDONE PALMITATE
  8. COGENTIN [Suspect]
     Active Substance: BENZTROPINE MESYLATE
     Indication: SCHIZOPHRENIA
     Dosage: 1 TABLET
     Route: 048

REACTIONS (6)
  - Stress [None]
  - Dizziness [None]
  - Death of relative [None]
  - Amphetamines positive [None]
  - Intentional overdose [None]
  - Fatigue [None]

NARRATIVE: CASE EVENT DATE: 20141008
